FAERS Safety Report 7495399-6 (Version None)
Quarter: 2011Q2

REPORT INFORMATION
  Report Type: 
  Country: None (occurrence: None)
  Receive Date: 20110513
  Receipt Date: 20101126
  Transmission Date: 20111010
  Serious: Yes (Hospitalization)
  Sender: FDA-Public Use
  Company Number: 2010004816

PATIENT
  Age: 55 Year
  Sex: Male
  Weight: 63.1 kg

DRUGS (8)
  1. FORTISIP (FORTISIP) [Concomitant]
  2. ADEFOVIR (ADEFOVIR) [Concomitant]
  3. MAXOLON [Concomitant]
  4. LAMIVUDINE [Concomitant]
  5. SUCRALFATE [Concomitant]
  6. ERLOTINIB HYDROCHLORIDE [Suspect]
     Indication: HEPATIC NEOPLASM MALIGNANT
     Dosage: 150 MG, QD, ORAL
     Route: 048
     Dates: start: 20101004, end: 20101025
  7. SORAFENIB [Suspect]
     Indication: HEPATIC NEOPLASM MALIGNANT
     Dosage: 400 MG, ORAL
     Route: 048
     Dates: start: 20101004, end: 20101025
  8. FUROSEMIDE [Concomitant]

REACTIONS (3)
  - GASTROINTESTINAL HAEMORRHAGE [None]
  - MELAENA [None]
  - OESOPHAGEAL VARICES HAEMORRHAGE [None]
